FAERS Safety Report 9556251 (Version 1)
Quarter: 2013Q3

REPORT INFORMATION
  Report Type: Spontaneous
  Country: US (occurrence: None)
  Receive Date: 20130815
  Receipt Date: 20130815
  Transmission Date: 20140515
  Serious: Yes (Other)
  Sender: FDA-Public Use
  Company Number: ADR-2013-00307

PATIENT
  Age: 52 Year
  Sex: Female

DRUGS (6)
  1. BACLOFEN INTRATHECAL [Suspect]
     Indication: BREAST PAIN
     Dosage: 90.10 MCG/DAY
  2. DILAUDID (HYDROMORPHONE) [Concomitant]
  3. BUPIVACAINE [Concomitant]
  4. INTRATHECAL [Concomitant]
  5. CLINDAMYCIN ORAL [Concomitant]
  6. BACTRIM DS ORAL [Concomitant]

REACTIONS (2)
  - Postoperative wound infection [None]
  - Implant site erythema [None]
